FAERS Safety Report 23497347 (Version 2)
Quarter: 2024Q3

REPORT INFORMATION
  Report Type: Spontaneous
  Country: US (occurrence: US)
  Receive Date: 20240208
  Receipt Date: 20240717
  Transmission Date: 20241016
  Serious: No
  Sender: SANOFI AVENTIS
  Company Number: US-SA-SAC20240206000021

PATIENT
  Age: 50 Year
  Sex: Male

DRUGS (3)
  1. DUPIXENT [Suspect]
     Active Substance: DUPILUMAB
     Indication: Dermatitis atopic
     Dosage: 600 MG, 1X
     Route: 058
     Dates: start: 20231213, end: 20231213
  2. DUPIXENT [Suspect]
     Active Substance: DUPILUMAB
     Dosage: 300 MG, QOW
     Route: 058
     Dates: start: 20231227, end: 2024
  3. DUPIXENT [Suspect]
     Active Substance: DUPILUMAB
     Dosage: 300 MG, BIM (15TH AND 30TH OF EACH MONTH)
     Route: 058
     Dates: start: 2024

REACTIONS (2)
  - Cough [Not Recovered/Not Resolved]
  - Product dose omission in error [Unknown]

NARRATIVE: CASE EVENT DATE: 20240101
